FAERS Safety Report 4554582-X (Version None)
Quarter: 2005Q1

REPORT INFORMATION
  Report Type: 
  Country: None (occurrence: None)
  Receive Date: 20050118
  Receipt Date: 20050106
  Transmission Date: 20050727
  Serious: Yes (Hospitalization)
  Sender: FDA-Public Use
  Company Number: FR-MERCK-0501FRA00020

PATIENT
  Age: 61 Year
  Sex: Female
  Weight: 85 kg

DRUGS (4)
  1. ZOCOR [Suspect]
     Indication: HYPERCHOLESTEROLAEMIA
     Route: 048
     Dates: start: 20040130, end: 20040923
  2. GLICLAZIDE [Concomitant]
     Route: 048
  3. METFORMIN HYDROCHLORIDE [Concomitant]
     Route: 048
  4. CLONIDINE HYDROCHLORIDE [Concomitant]
     Indication: ESSENTIAL HYPERTENSION
     Route: 048

REACTIONS (2)
  - RENAL FAILURE ACUTE [None]
  - RHABDOMYOLYSIS [None]
